FAERS Safety Report 8928695 (Version 1)
Quarter: 2012Q4

REPORT INFORMATION
  Report Type: Spontaneous
  Country: US (occurrence: None)
  Receive Date: 20121126
  Receipt Date: 20121126
  Transmission Date: 20130627
  Serious: Yes (Other)
  Sender: FDA-Public Use
  Company Number: None

PATIENT
  Age: 23 Year
  Sex: Female
  Weight: 74.84 kg

DRUGS (2)
  1. AMOXICILLIN 875MG CVS [Suspect]
     Indication: EAR INFECTION
     Dosage: one tablet every 12hrs     Buccal
     Route: 002
     Dates: start: 20121116, end: 20121125
  2. AMOXICILLIN 875MG CVS [Suspect]
     Indication: SINUS INFECTION
     Dosage: one tablet every 12hrs     Buccal
     Route: 002
     Dates: start: 20121116, end: 20121125

REACTIONS (5)
  - Mood swings [None]
  - Irritability [None]
  - Anger [None]
  - Screaming [None]
  - Bradyphrenia [None]
